FAERS Safety Report 15326292 (Version 1)
Quarter: 2018Q3

REPORT INFORMATION
  Report Type: Spontaneous
  Country: US (occurrence: US)
  Receive Date: 20180828
  Receipt Date: 20180828
  Transmission Date: 20181010
  Serious: No
  Sender: FDA-Public Use
  Company Number: US-OREXO US, INC.-E2B_00000063

PATIENT
  Age: 57 Year
  Sex: Male
  Weight: 91.25 kg

DRUGS (6)
  1. BUPRENORPHINE / NALOXONE [Suspect]
     Active Substance: BUPRENORPHINE\NALOXONE
     Indication: DRUG DEPENDENCE
     Dosage: 2/0.5MG FILMS, ONE?HALF FILM TWICE DAILY
     Dates: start: 20170925, end: 20170928
  2. GABAPENTIN. [Concomitant]
     Active Substance: GABAPENTIN
     Indication: ANXIETY
  3. CLONIDINE. [Concomitant]
     Active Substance: CLONIDINE
     Indication: ANXIETY
  4. GABAPENTIN. [Concomitant]
     Active Substance: GABAPENTIN
     Indication: DRUG DEPENDENCE
  5. ZUBSOLV [Suspect]
     Active Substance: BUPRENORPHINE HYDROCHLORIDE\NALOXONE HYDROCHLORIDE
     Dosage: 2.9/0.71 MG
  6. ZUBSOLV [Suspect]
     Active Substance: BUPRENORPHINE HYDROCHLORIDE\NALOXONE HYDROCHLORIDE
     Indication: DRUG DEPENDENCE
     Dosage: 1.4/0.36 TWICE A DAY(TWO TABLETS IN MORNING AND ONE IN EVENING)
     Route: 060
     Dates: start: 20170928

REACTIONS (5)
  - Formication [Recovered/Resolved]
  - Myalgia [Recovered/Resolved]
  - Panic attack [Recovered/Resolved]
  - Hyperhidrosis [Recovered/Resolved]
  - Conversion disorder [Recovered/Resolved]

NARRATIVE: CASE EVENT DATE: 20171002
